FAERS Safety Report 21816935 (Version 2)
Quarter: 2023Q2

REPORT INFORMATION
  Report Type: Spontaneous
  Country: US (occurrence: US)
  Receive Date: 20230104
  Receipt Date: 20230413
  Transmission Date: 20230721
  Serious: No
  Sender: FDA-Public Use
  Company Number: US-PFIZER INC-PV202300000978

PATIENT
  Age: 72 Year
  Sex: Female
  Weight: 188.98 kg

DRUGS (14)
  1. PAXLOVID [Suspect]
     Active Substance: NIRMATRELVIR\RITONAVIR
     Indication: COVID-19 treatment
     Dosage: [PF-07321332 300 MG]/[RITONAVIR 100 MG]; 2X/DAY
     Dates: start: 20221228, end: 202301
  2. ADVAIR HFA [Concomitant]
     Active Substance: FLUTICASONE PROPIONATE\SALMETEROL XINAFOATE
     Dosage: UNK (250/50; TAKING FOR MORE THAN 5 YEARS)
  3. ALAWAY [Concomitant]
     Active Substance: KETOTIFEN FUMARATE
     Dosage: UNK (TAKING FOR MORE THAN 3 YEARS)
  4. AMLODIPINE [Concomitant]
     Active Substance: AMLODIPINE BESYLATE
     Dosage: UNK
  5. ATORVASTATIN [Concomitant]
     Active Substance: ATORVASTATIN
     Dosage: UNK (TAKING FOR 3 YEARS)
  6. CYMBALTA [Concomitant]
     Active Substance: DULOXETINE HYDROCHLORIDE
     Dosage: UNK (TAKING FOR 2 YEARSS)
  7. FLUTICASONE PROPIONATE [Concomitant]
     Active Substance: FLUTICASONE PROPIONATE
  8. GABAPENTIN [Concomitant]
     Active Substance: GABAPENTIN
     Dosage: UNK (TAKING FOR MORE THAN 5 YEARS)
  9. NEXIUM [Concomitant]
     Active Substance: ESOMEPRAZOLE MAGNESIUM
     Dosage: UNK (TAKING FOR 5 YEARS)
  10. QVAR [Concomitant]
     Active Substance: BECLOMETHASONE DIPROPIONATE
     Dosage: UNK (TAKING FOR 1 YEAR)
  11. SINGULAIR [Concomitant]
     Active Substance: MONTELUKAST SODIUM
     Dosage: UNK (TAKING FOR MORE THAN 5 YEARS)
  12. VOLTREX [DICLOFENAC SODIUM] [Concomitant]
     Dosage: UNK
  13. XOPENEX [Concomitant]
     Active Substance: LEVALBUTEROL HYDROCHLORIDE
     Dosage: UNK (TAKING FOR MORE THAN 5 YEARS)
  14. XYZAL [Concomitant]
     Active Substance: LEVOCETIRIZINE DIHYDROCHLORIDE
     Dosage: UNK (TAKING FOR 5 YEARS)

REACTIONS (8)
  - Therapeutic response unexpected [Unknown]
  - Energy increased [Unknown]
  - Euphoric mood [Unknown]
  - Fatigue [Unknown]
  - Hypersomnia [Unknown]
  - Pain [Unknown]
  - Disease recurrence [Unknown]
  - Cough [Unknown]

NARRATIVE: CASE EVENT DATE: 20221228
